FAERS Safety Report 24643131 (Version 2)
Quarter: 2024Q4

REPORT INFORMATION
  Report Type: Spontaneous
  Country: DE (occurrence: DE)
  Receive Date: 20241120
  Receipt Date: 20241216
  Transmission Date: 20250115
  Serious: Yes (Other)
  Sender: SANDOZ
  Company Number: None

PATIENT
  Age: 61 Year
  Sex: Female
  Weight: 43 kg

DRUGS (2)
  1. ACLASTA [Suspect]
     Active Substance: ZOLEDRONIC ACID
     Dosage: 1X PRO JAHR 1 INFUSION, BISLANG 2 INFUSUIONENUNK
     Route: 065
     Dates: start: 202409
  2. ACLASTA [Suspect]
     Active Substance: ZOLEDRONIC ACID
     Indication: Osteoporosis
     Dosage: UNK
     Route: 065

REACTIONS (5)
  - Carotid arteriosclerosis [Unknown]
  - Blood test abnormal [Unknown]
  - Thyroid hormones increased [Unknown]
  - Blepharospasm [Unknown]
  - Blood cholesterol increased [Unknown]
